FAERS Safety Report 8341849 (Version 10)
Quarter: 2012Q4

REPORT INFORMATION
  Report Type: 
  Country: US (occurrence: US)
  Receive Date: 20111202
  Receipt Date: 20121001
  Transmission Date: 20130627
  Serious: Yes (Hospitalization, Disabling, Other)
  Sender: FDA-Public Use
  Company Number: US-009507513-2011SP030647

PATIENT

DRUGS (4)
  1. NUVARING [Suspect]
     Indication: CONTRACEPTION
     Dates: start: 200605, end: 200908
  2. NUVARING [Suspect]
     Dates: start: 200705, end: 200908
  3. MIRENA [Suspect]
     Indication: PRODUCT USED FOR UNKNOWN INDICATION
     Dates: end: 20090810
  4. PHENDIMETRAZINE HYDROCHLORIDE [Concomitant]
     Indication: MEDICAL DIET
     Dates: start: 2006

REACTIONS (36)
  - Chest pain [Unknown]
  - Tachycardia [Unknown]
  - Carotid artery dissection [Unknown]
  - Back injury [Unknown]
  - Head injury [Unknown]
  - Pulmonary embolism [Recovered/Resolved with Sequelae]
  - Carotid artery occlusion [Not Recovered/Not Resolved]
  - Tonsillitis [Recovered/Resolved]
  - Musculoskeletal pain [Not Recovered/Not Resolved]
  - Arthralgia [Unknown]
  - Joint injury [Unknown]
  - Musculoskeletal chest pain [Unknown]
  - Oral surgery [Unknown]
  - Hypercoagulation [Unknown]
  - Gastrooesophageal reflux disease [Not Recovered/Not Resolved]
  - Diplopia [Unknown]
  - Pulmonary mass [Not Recovered/Not Resolved]
  - Chest discomfort [Not Recovered/Not Resolved]
  - Pharyngitis [Not Recovered/Not Resolved]
  - Arthropod bite [Unknown]
  - Cellulitis [Recovered/Resolved]
  - Laryngitis [Unknown]
  - Cyst [Unknown]
  - Sinus polyp [Unknown]
  - Herpes virus infection [Recovered/Resolved]
  - Blood triglycerides increased [Unknown]
  - Carpal tunnel syndrome [Unknown]
  - Arthritis [Unknown]
  - Pulmonary hypertension [Unknown]
  - Chest X-ray abnormal [Unknown]
  - Oedema peripheral [Unknown]
  - Palpitations [Unknown]
  - Diarrhoea [Unknown]
  - Weight increased [Unknown]
  - Migraine [Unknown]
  - Large intestine polyp [Unknown]
